FAERS Safety Report 9478965 (Version 2)
Quarter: 2013Q3

REPORT INFORMATION
  Report Type: Spontaneous
  Country: FR (occurrence: FR)
  Receive Date: 20130827
  Receipt Date: 20130913
  Transmission Date: 20140515
  Serious: Yes (Other)
  Sender: FDA-Public Use
  Company Number: FR-PFIZER INC-2013243539

PATIENT
  Age: 45 Year
  Sex: Female
  Weight: 55 kg

DRUGS (7)
  1. LYRICA [Suspect]
     Indication: SCIATICA
     Dosage: 2 DF DAILY
     Dates: start: 20130525, end: 20130529
  2. LYRICA [Suspect]
     Dosage: 3 DF DAILY
     Dates: start: 20130530, end: 20130603
  3. LYRICA [Suspect]
     Dosage: 4 DF DAILY
     Dates: start: 20130604, end: 20130608
  4. LYRICA [Suspect]
     Dosage: 75 MG, 2X/DAY
     Dates: start: 20130609, end: 20130822
  5. MORPHINE [Concomitant]
     Dosage: UNK
  6. BI-PROFENID [Concomitant]
     Indication: SCIATICA
     Dosage: 200 MG DAILY DIVIDED INTO 2 INTAKES
     Route: 048
     Dates: start: 20130812
  7. ACTISKENAN [Concomitant]
     Dosage: UNK
     Route: 048
     Dates: start: 20130727

REACTIONS (3)
  - Tachyarrhythmia [Unknown]
  - Tachycardia [Recovered/Resolved]
  - Atrial tachycardia [Recovering/Resolving]
